FAERS Safety Report 19907951 (Version 1)
Quarter: 2021Q4

REPORT INFORMATION
  Report Type: Spontaneous
  Country: JP (occurrence: JP)
  Receive Date: 20211001
  Receipt Date: 20211001
  Transmission Date: 20220303
  Serious: Yes (Death, Other)
  Sender: FDA-Public Use
  Company Number: JP-AMGEN-JPNSP2021150655

PATIENT

DRUGS (1)
  1. BLINATUMOMAB [Suspect]
     Active Substance: BLINATUMOMAB
     Indication: B precursor type acute leukaemia
     Dosage: UNK
     Route: 065

REACTIONS (6)
  - Pneumothorax [Fatal]
  - Acute lymphocytic leukaemia recurrent [Unknown]
  - Tumour pseudoprogression [Unknown]
  - Pancytopenia [Unknown]
  - Leukoencephalopathy [Unknown]
  - Cytokine release syndrome [Unknown]
